FAERS Safety Report 6841032-3 (Version None)
Quarter: 2010Q3

REPORT INFORMATION
  Report Type: 
  Country: None (occurrence: None)
  Receive Date: 20100714
  Receipt Date: 20070623
  Transmission Date: 20110219
  Serious: No
  Sender: FDA-Public Use
  Company Number: US-PFIZER INC-2007052624

PATIENT
  Sex: Male
  Weight: 79.4 kg

DRUGS (10)
  1. CHANTIX [Suspect]
     Indication: SMOKING CESSATION THERAPY
     Route: 048
     Dates: start: 20070619
  2. PERCOCET [Concomitant]
     Dosage: 5/325
  3. VALIUM [Concomitant]
  4. ACETYLSALICYLIC ACID [Concomitant]
  5. BACLOFEN [Concomitant]
  6. TRAZODONE HYDROCHLORIDE [Concomitant]
  7. CRANBERRY [Concomitant]
  8. CITRACAL + D [Concomitant]
  9. MULTI-VITAMINS [Concomitant]
  10. GALENIC /DOCUSATE/SENNA/ [Concomitant]

REACTIONS (1)
  - NAUSEA [None]
